FAERS Safety Report 19883678 (Version 2)
Quarter: 2021Q4

REPORT INFORMATION
  Report Type: Other
  Country: US (occurrence: US)
  Receive Date: 20210927
  Receipt Date: 20211013
  Transmission Date: 20220303
  Serious: Yes (Death, Hospitalization)
  Sender: FDA-Public Use
  Company Number: US-INTERCEPT-PM2021002816

PATIENT
  Age: 92 Year
  Sex: Female

DRUGS (1)
  1. OCALIVA [Suspect]
     Active Substance: OBETICHOLIC ACID
     Indication: Primary biliary cholangitis
     Dosage: 5 MILLIGRAM, QD
     Route: 048
     Dates: start: 201701

REACTIONS (4)
  - Death [Fatal]
  - Hyperkalaemia [Unknown]
  - Acute kidney injury [Unknown]
  - Hospice care [Unknown]

NARRATIVE: CASE EVENT DATE: 20210702
